FAERS Safety Report 4528636-8 (Version None)
Quarter: 2004Q4

REPORT INFORMATION
  Report Type: 
  Country: None (occurrence: None)
  Receive Date: 20041216
  Receipt Date: 20040917
  Transmission Date: 20050328
  Serious: Yes (Hospitalization, Disabling)
  Sender: FDA-Public Use
  Company Number: FR-MERCK-0409FRA00072

PATIENT
  Age: 64 Year
  Sex: Female

DRUGS (6)
  1. ZOCOR [Suspect]
     Indication: HYPERCHOLESTEROLAEMIA
     Route: 048
     Dates: end: 20040912
  2. LEVOTHYROXINE SODIUM [Concomitant]
     Indication: HYPOTHYROIDISM
     Route: 048
  3. FLUOXETINE HCL [Suspect]
     Indication: DEPRESSION
     Route: 048
     Dates: end: 20040912
  4. RISPERIDONE [Suspect]
     Indication: DEPRESSION
     Route: 048
     Dates: end: 20040912
  5. ZOPICLONE [Suspect]
     Indication: INSOMNIA
     Route: 048
     Dates: end: 20040912
  6. ACEPROMAZINE AND ACEPROMETAZINE AND CLORAZEPATE DIPOTASSIUM [Suspect]
     Indication: INSOMNIA
     Route: 048
     Dates: end: 20040912

REACTIONS (5)
  - CONFUSIONAL STATE [None]
  - DYSSTASIA [None]
  - FALL [None]
  - NEUROPATHY [None]
  - RHABDOMYOLYSIS [None]
